FAERS Safety Report 21909516 (Version 1)
Quarter: 2023Q1

REPORT INFORMATION
  Report Type: Spontaneous
  Country: CZ (occurrence: CZ)
  Receive Date: 20230125
  Receipt Date: 20230125
  Transmission Date: 20230418
  Serious: Yes (Hospitalization)
  Sender: FDA-Public Use
  Company Number: CZ-Accord-296556

PATIENT
  Age: 69 Year
  Sex: Male
  Weight: 79 kg

DRUGS (19)
  1. OXALIPLATIN [Suspect]
     Active Substance: OXALIPLATIN
     Indication: Product used for unknown indication
     Dosage: 1Q2W
     Dates: start: 20221122, end: 20221213
  2. GEMCITABINE [Suspect]
     Active Substance: GEMCITABINE
     Indication: Product used for unknown indication
     Dosage: 1Q2W
     Dates: start: 20221213, end: 20221213
  3. GEMCITABINE [Suspect]
     Active Substance: GEMCITABINE
     Dosage: 1Q2W
     Dates: start: 20221122, end: 20221122
  4. EPCORITAMAB [Suspect]
     Active Substance: EPCORITAMAB
     Indication: Product used for unknown indication
     Dosage: RE-PRIMING DOSE, SINGLE?ROA-20066000- SUBCUTANEOUS
     Dates: start: 20221213, end: 20221213
  5. EPCORITAMAB [Suspect]
     Active Substance: EPCORITAMAB
     Dosage: PRIMING DOSE, SINGLE?ROA-20066000- SUBCUTANEOUS
     Dates: start: 20221122, end: 20221122
  6. EPCORITAMAB [Suspect]
     Active Substance: EPCORITAMAB
     Dosage: INTERMEDIATE DOSE, SINGLE?ROA-20066000- SUBCUTANEOUS
     Dates: start: 20221129, end: 20221129
  7. ACETAMINOPHEN [Concomitant]
     Active Substance: ACETAMINOPHEN
     Indication: Product used for unknown indication
     Dosage: ROA-20053000- ORAL
     Dates: start: 20221213, end: 20221213
  8. MAGNESIUM LACTATE [Concomitant]
     Active Substance: MAGNESIUM LACTATE
     Indication: Product used for unknown indication
  9. POTASSIUM CHLORIDE [Concomitant]
     Active Substance: POTASSIUM CHLORIDE
     Indication: Product used for unknown indication
     Dates: start: 2021
  10. PROPAFENONE HYDROCHLORIDE [Concomitant]
     Active Substance: PROPAFENONE HYDROCHLORIDE
     Indication: Product used for unknown indication
     Dates: start: 201612
  11. LACTULOSE [Concomitant]
     Active Substance: LACTULOSE
     Indication: Product used for unknown indication
  12. FILGRASTIM [Concomitant]
     Active Substance: FILGRASTIM
     Indication: Product used for unknown indication
     Dates: start: 20221205, end: 20221207
  13. BISOPROLOL FUMARATE [Concomitant]
     Active Substance: BISOPROLOL FUMARATE
     Indication: Product used for unknown indication
     Dates: start: 2020
  14. ALLOPURINOL [Concomitant]
     Active Substance: ALLOPURINOL
     Indication: Product used for unknown indication
     Dates: start: 2021, end: 20221207
  15. BISULEPIN [Concomitant]
     Active Substance: BISULEPIN
     Indication: Product used for unknown indication
     Dates: start: 20221213, end: 20221213
  16. FENTANYL [Concomitant]
     Active Substance: FENTANYL
     Indication: Product used for unknown indication
     Dates: start: 2021
  17. TRAZODONE HYDROCHLORIDE [Concomitant]
     Active Substance: TRAZODONE HYDROCHLORIDE
     Indication: Product used for unknown indication
     Dates: start: 2022
  18. PREDNISONE [Concomitant]
     Active Substance: PREDNISONE
     Indication: Product used for unknown indication
     Dosage: ROA-20053000- ORAL
     Dates: start: 20221122, end: 20221125
  19. PREDNISONE [Concomitant]
     Active Substance: PREDNISONE
     Dosage: ROA-20053000- ORAL
     Dates: start: 20221213, end: 20221216

REACTIONS (1)
  - Cytokine release syndrome [Not Recovered/Not Resolved]

NARRATIVE: CASE EVENT DATE: 20221228
